FAERS Safety Report 16882440 (Version 2)
Quarter: 2019Q4

REPORT INFORMATION
  Report Type: Spontaneous
  Country: US (occurrence: US)
  Receive Date: 20191003
  Receipt Date: 20191223
  Transmission Date: 20200122
  Serious: No
  Sender: FDA-Public Use
  Company Number: US-STRONGBRIDGE BIOPHARMA-2019-STR-000256

PATIENT
  Sex: Male

DRUGS (1)
  1. KEVEYIS [Suspect]
     Active Substance: DICHLORPHENAMIDE
     Indication: MYOTONIA CONGENITA
     Dosage: 50 MG, BID
     Route: 048
     Dates: start: 20190822, end: 20190930

REACTIONS (5)
  - Aphasia [Unknown]
  - Drug ineffective [Unknown]
  - Tremor [Unknown]
  - Memory impairment [Unknown]
  - Headache [Unknown]
